FAERS Safety Report 8054735 (Version 4)
Quarter: 2024Q4

REPORT INFORMATION
  Report Type: Spontaneous
  Country: GB (occurrence: GB)
  Receive Date: 20110726
  Receipt Date: 20241203
  Transmission Date: 20250115
  Serious: Yes (Death, Life-Threatening, Hospitalization, Other)
  Sender: ALEXION PHARMACEUTICALS
  Company Number: 2011SE43711

PATIENT
  Age: 21 Year
  Weight: 120 kg

DRUGS (16)
  1. SEROQUEL XR [Suspect]
     Active Substance: QUETIAPINE FUMARATE
     Indication: Obsessive-compulsive disorder
     Dosage: 800 MILLIGRAM, QD
  2. SEROQUEL XR [Suspect]
     Active Substance: QUETIAPINE FUMARATE
     Indication: Psychotic disorder
     Dosage: 800 MILLIGRAM, QD
  3. SEROQUEL XR [Suspect]
     Active Substance: QUETIAPINE FUMARATE
     Dosage: 800 MILLIGRAM, QD
  4. SEROQUEL XR [Suspect]
     Active Substance: QUETIAPINE FUMARATE
     Dosage: 800 MILLIGRAM, QD
  5. FLUOXETINE [Suspect]
     Active Substance: FLUOXETINE HYDROCHLORIDE
     Indication: Obsessive-compulsive disorder
     Dosage: 60 MILLIGRAM, QD (60 MG, 1X/DAY)
  6. FLUOXETINE [Suspect]
     Active Substance: FLUOXETINE HYDROCHLORIDE
     Indication: Depressed mood
     Dosage: 60 MILLIGRAM, QD (60 MG, 1X/DAY)
     Route: 065
  7. LYRICA [Suspect]
     Active Substance: PREGABALIN
     Indication: Obsessive-compulsive disorder
     Dosage: 225 MILLIGRAM, BID
  8. LYRICA [Suspect]
     Active Substance: PREGABALIN
     Indication: Anxiety
     Dosage: 225 MILLIGRAM, BID
  9. UNSPECIFIED INGREDIENT [Concomitant]
     Active Substance: UNSPECIFIED INGREDIENT
  10. UNSPECIFIED INGREDIENT [Concomitant]
     Active Substance: UNSPECIFIED INGREDIENT
     Route: 065
  11. QUETIAPINE FUMARATE [Suspect]
     Active Substance: QUETIAPINE FUMARATE
     Indication: Psychotic disorder
     Dosage: 800 MILLIGRAM, QD (800 MG, 1X/DAY)
  12. QUETIAPINE FUMARATE [Suspect]
     Active Substance: QUETIAPINE FUMARATE
     Indication: Obsessive-compulsive disorder
     Dosage: 800 MILLIGRAM, QD (800 MG, 1X/DAY)
  13. QUETIAPINE [Suspect]
     Active Substance: QUETIAPINE
     Indication: Obsessive-compulsive disorder
     Dosage: 800 MILLIGRAM, QD (800 MG, 1X/DAY)
  14. QUETIAPINE [Suspect]
     Active Substance: QUETIAPINE
     Dosage: 800 MILLIGRAM, QD (800 MG, 1X/DAY)
  15. PREGABALIN [Suspect]
     Active Substance: PREGABALIN
     Indication: Anxiety
     Dosage: 225 MG, 2X/DAY
  16. PREGABALIN [Suspect]
     Active Substance: PREGABALIN
     Indication: Obsessive-compulsive disorder
     Dosage: 225 MG, 2X/DAY

REACTIONS (10)
  - Pancreatitis necrotising [Fatal]
  - Rhabdomyolysis [Fatal]
  - Pancreatitis acute [Fatal]
  - Septic shock [Unknown]
  - Hyperpyrexia [Unknown]
  - Abdominal pain [Unknown]
  - Pyrexia [Unknown]
  - Vomiting [Unknown]
  - Multiple organ dysfunction syndrome [Not Recovered/Not Resolved]
  - Abdominal pain [Unknown]
